FAERS Safety Report 10425343 (Version 1)
Quarter: 2014Q3

REPORT INFORMATION
  Report Type: Spontaneous
  Country: JP (occurrence: JP)
  Receive Date: 20140902
  Receipt Date: 20140902
  Transmission Date: 20150326
  Serious: Yes (Other)
  Sender: FDA-Public Use
  Company Number: PHHY2014JP109738

PATIENT
  Age: 65 Year
  Sex: Female

DRUGS (6)
  1. TAMOXIFEN [Suspect]
     Active Substance: TAMOXIFEN
     Dosage: UNK UKN, UNK
  2. ZOMETA [Suspect]
     Active Substance: ZOLEDRONIC ACID
     Indication: BREAST CANCER METASTATIC
     Dosage: UNK UKN, UNK
     Dates: start: 200804, end: 201001
  3. LETROZOLE. [Concomitant]
     Active Substance: LETROZOLE
     Dosage: UNK UKN, UNK
     Dates: start: 200804, end: 201102
  4. URACIL [Concomitant]
     Active Substance: URACIL
     Dosage: UNK UKN, UNK
     Dates: start: 200804
  5. ZOMETA [Suspect]
     Active Substance: ZOLEDRONIC ACID
     Dosage: UNK UKN, UNK
     Dates: end: 201102
  6. TEGAFUR [Concomitant]
     Active Substance: TEGAFUR
     Dosage: UNK UKN, UNK
     Dates: start: 200804

REACTIONS (3)
  - Osteonecrosis of jaw [Unknown]
  - Exposed bone in jaw [Unknown]
  - Diplopia [Unknown]

NARRATIVE: CASE EVENT DATE: 200907
